FAERS Safety Report 16960119 (Version 1)
Quarter: 2019Q4

REPORT INFORMATION
  Report Type: Spontaneous
  Country: CN (occurrence: CN)
  Receive Date: 20191025
  Receipt Date: 20191025
  Transmission Date: 20200122
  Serious: Yes (Other)
  Sender: FDA-Public Use
  Company Number: CN-BAXTER-2019BAX021105

PATIENT
  Age: 75 Year
  Sex: Male
  Weight: 75 kg

DRUGS (6)
  1. 0.9% SODIUM CHLORIDE INJECTION [Suspect]
     Active Substance: SODIUM CHLORIDE
     Indication: MEDICATION DILUTION
     Dosage: ENDOXAN 0.6 G + 0.9% NS 50 ML
     Route: 041
     Dates: start: 20190922, end: 20190923
  2. 0.9% SODIUM CHLORIDE INJECTION [Suspect]
     Active Substance: SODIUM CHLORIDE
     Dosage: VINDESINE 4 MG + 0.9% NS 40ML
     Route: 042
     Dates: start: 20190922, end: 20190923
  3. 0.9% SODIUM CHLORIDE INJECTION [Suspect]
     Active Substance: SODIUM CHLORIDE
     Dosage: AIDASHENG 60 MG + 0.9% NS 100 ML
     Route: 041
     Dates: start: 20190922, end: 20190923
  4. AIDASHENG [Suspect]
     Active Substance: EPIRUBICIN HYDROCHLORIDE
     Indication: MANTLE CELL LYMPHOMA
     Dosage: AIDASHENG 60 MG + 0.9% NS 100 ML
     Route: 041
     Dates: start: 20190922, end: 20190923
  5. VINDESINE [Suspect]
     Active Substance: VINDESINE
     Indication: MANTLE CELL LYMPHOMA
     Dosage: VINDESINE 4 MG + 0.9% NS 40 ML
     Route: 042
     Dates: start: 20190922, end: 20190923
  6. ENDOXAN [Suspect]
     Active Substance: CYCLOPHOSPHAMIDE
     Indication: MANTLE CELL LYMPHOMA
     Dosage: ENDOXAN 0.6 G + 0.9% NS (SODIUM CHLORIDE) 50ML
     Route: 041
     Dates: start: 20190922, end: 20190923

REACTIONS (1)
  - Bone marrow failure [Recovering/Resolving]

NARRATIVE: CASE EVENT DATE: 20191002
